FAERS Safety Report 22049807 (Version 1)
Quarter: 2023Q1

REPORT INFORMATION
  Report Type: Spontaneous
  Country: US (occurrence: US)
  Receive Date: 20230301
  Receipt Date: 20230301
  Transmission Date: 20230418
  Serious: No
  Sender: FDA-Public Use
  Company Number: US-PFIZER INC-PV202300037343

PATIENT
  Age: 81 Year
  Sex: Male

DRUGS (1)
  1. RETACRIT [Suspect]
     Active Substance: EPOETIN ALFA-EPBX
     Indication: Thrombocytopenia
     Dosage: 40000 UN/ML (VL 4X1ML)

REACTIONS (2)
  - Anaemia [Unknown]
  - Off label use [Unknown]
